FAERS Safety Report 17777014 (Version 1)
Quarter: 2020Q2

REPORT INFORMATION
  Report Type: Spontaneous
  Country: IT (occurrence: IT)
  Receive Date: 20200513
  Receipt Date: 20200513
  Transmission Date: 20200714
  Serious: Yes (Hospitalization)
  Sender: FDA-Public Use
  Company Number: IT-ASTRAZENECA-2020SE59661

PATIENT
  Age: 51 Year
  Sex: Male

DRUGS (3)
  1. CONGESCOR [Concomitant]
     Active Substance: BISOPROLOL
  2. BRILIQUE [Suspect]
     Active Substance: TICAGRELOR
     Indication: ACUTE MYOCARDIAL INFARCTION
     Route: 048
     Dates: start: 20200201, end: 20200423
  3. CARDIOASPIRIN [Suspect]
     Active Substance: ASPIRIN
     Indication: ISCHAEMIC HEART DISEASE PROPHYLAXIS
     Route: 048
     Dates: start: 20200201, end: 20200423

REACTIONS (4)
  - Anaemia [Recovered/Resolved]
  - Melaena [Recovered/Resolved]
  - Duodenal ulcer haemorrhage [Recovered/Resolved]
  - Gastric disorder [Recovered/Resolved]

NARRATIVE: CASE EVENT DATE: 20200423
